FAERS Safety Report 11024812 (Version 1)
Quarter: 2015Q2

REPORT INFORMATION
  Report Type: Other
  Country: EG (occurrence: EG)
  Receive Date: 20150414
  Receipt Date: 20150414
  Transmission Date: 20150821
  Serious: Yes (Hospitalization)
  Sender: FDA-Public Use
  Company Number: EG-EMD SERONO-8019988

PATIENT
  Sex: Female

DRUGS (2)
  1. GONAL-F [Suspect]
     Active Substance: FOLLITROPIN
     Indication: OVULATION INDUCTION
     Dosage: MAXIMUM PERMITTED DAILY DOSE WAS 225 IU
     Route: 058
  2. GONAL-F [Suspect]
     Active Substance: FOLLITROPIN
     Dosage: INCREASE OF 37.5 IU ON INITIAL DOSE ON DAY 7, IF NO FOLLICLES GREATER THAN 10 MM WERE OBSERVED.

REACTIONS (1)
  - Ectopic pregnancy [Recovered/Resolved]
